FAERS Safety Report 15960906 (Version 1)
Quarter: 2019Q1

REPORT INFORMATION
  Report Type: Spontaneous
  Country: US (occurrence: US)
  Receive Date: 20190214
  Receipt Date: 20190214
  Transmission Date: 20190417
  Serious: No
  Sender: FDA-Public Use
  Company Number: US-MYLANLABS-2019M1010533

PATIENT
  Age: 37 Year
  Sex: Female

DRUGS (1)
  1. EPINEPHRINE INJECTION USP AUTO-INJECTOR [Suspect]
     Active Substance: EPINEPHRINE
     Indication: PRODUCT USED FOR UNKNOWN INDICATION
     Dosage: UNK
     Route: 030
     Dates: start: 20190129, end: 20190129

REACTIONS (8)
  - Accidental exposure to product [Recovering/Resolving]
  - Pain in extremity [Recovering/Resolving]
  - Headache [Recovered/Resolved]
  - Expired product administered [Recovering/Resolving]
  - Injection site bruising [Recovering/Resolving]
  - Heart rate increased [Recovered/Resolved]
  - Injection site erythema [Recovering/Resolving]
  - Tremor [Recovered/Resolved]

NARRATIVE: CASE EVENT DATE: 20190129
